FAERS Safety Report 12651059 (Version 1)
Quarter: 2016Q3

REPORT INFORMATION
  Report Type: Spontaneous
  Country: US (occurrence: None)
  Receive Date: 20160812
  Receipt Date: 20160812
  Transmission Date: 20161109
  Serious: Yes (Death)
  Sender: FDA-Public Use
  Company Number: None

PATIENT
  Age: 80 Year
  Sex: Male
  Weight: 136 kg

DRUGS (1)
  1. ENOXAPARIN [Suspect]
     Active Substance: ENOXAPARIN
     Indication: PERIPHERAL ARTERY THROMBOSIS

REACTIONS (10)
  - Pulmonary embolism [None]
  - Asthenia [None]
  - Renal failure [None]
  - Sputum culture positive [None]
  - Pyrexia [None]
  - Abdominal wall haematoma [None]
  - West Nile virus test positive [None]
  - Lethargy [None]
  - Staphylococcus test positive [None]
  - Compartment syndrome [None]

NARRATIVE: CASE EVENT DATE: 20150821
